FAERS Safety Report 14374462 (Version 2)
Quarter: 2018Q1

REPORT INFORMATION
  Report Type: Other
  Country: US (occurrence: US)
  Receive Date: 20180111
  Receipt Date: 20180119
  Transmission Date: 20180509
  Serious: Yes (Hospitalization)
  Sender: FDA-Public Use
  Company Number: US-UNITED THERAPEUTICS-UNT-2017-017726

PATIENT
  Age: 66 Year
  Sex: Female
  Weight: 64.85 kg

DRUGS (24)
  1. COZAAR [Concomitant]
     Active Substance: LOSARTAN POTASSIUM
     Indication: HYPERTENSION
     Dosage: 25 MG, TOTAL DAILY DOSE
     Route: 048
     Dates: start: 20160302
  2. CELLCEPT [Concomitant]
     Active Substance: MYCOPHENOLATE MOFETIL\MYCOPHENOLATE MOFETIL HYDROCHLORIDE
     Indication: SCLERODERMA
     Dosage: 750 MG, UNK
     Route: 048
     Dates: start: 20160714
  3. SCHIFF MOVE FREE [Concomitant]
     Active Substance: CHONDROITIN SULFATE A\GLUCOSAMINE
     Indication: PROPHYLAXIS
     Dosage: 1 TAB, UNK
     Route: 048
     Dates: start: 20150505
  4. KRILL OIL [Concomitant]
     Active Substance: DIETARY SUPPLEMENT
     Indication: PROPHYLAXIS
     Dosage: 1 TAB, UNK
     Route: 048
     Dates: start: 20150405
  5. VITAMIN D3 [Concomitant]
     Active Substance: CHOLECALCIFEROL
     Indication: PROPHYLAXIS
     Dosage: 1000 IU, UNK
     Route: 048
     Dates: start: 20150424
  6. PLAQUENIL                          /00072602/ [Concomitant]
     Active Substance: HYDROXYCHLOROQUINE DIPHOSPHATE
     Indication: SCLERODERMA
     Dosage: 200 MG, UNK
     Route: 048
     Dates: start: 20160223
  7. REMODULIN [Suspect]
     Active Substance: TREPROSTINIL
     Indication: PULMONARY HYPERTENSION
  8. BIOTIN [Concomitant]
     Active Substance: BIOTIN
     Indication: PROPHYLAXIS
     Dosage: 5000 ?G, UNK
     Route: 048
     Dates: start: 20150424
  9. DEMADEX [Concomitant]
     Active Substance: TORSEMIDE
     Indication: PRODUCT USED FOR UNKNOWN INDICATION
     Dosage: 20 MG, QD
     Route: 048
  10. REMODULIN [Suspect]
     Active Substance: TREPROSTINIL
     Indication: PULMONARY ARTERIAL HYPERTENSION
     Dosage: 0.084 ?G/KG, CONTINUING
     Route: 041
     Dates: start: 20160803
  11. MULTIVITAMIN                       /00097801/ [Concomitant]
     Active Substance: VITAMINS
     Indication: PROPHYLAXIS
     Dosage: 1 TAB, UNK
     Route: 048
     Dates: start: 20150424
  12. KLOR-CON [Concomitant]
     Active Substance: POTASSIUM CHLORIDE
     Indication: HYPOKALAEMIA
     Dosage: 10 MG, TOTAL DAILY DOSE
     Route: 048
     Dates: start: 20160108
  13. AMLODIPINE [Concomitant]
     Active Substance: AMLODIPINE BESYLATE
     Indication: PRODUCT USED FOR UNKNOWN INDICATION
     Route: 065
  14. ALDACTONE [Concomitant]
     Active Substance: SPIRONOLACTONE
     Indication: PRODUCT USED FOR UNKNOWN INDICATION
     Dosage: 25 MG, BID
     Route: 048
  15. REGLAN [Concomitant]
     Active Substance: METOCLOPRAMIDE HYDROCHLORIDE
     Indication: PRODUCT USED FOR UNKNOWN INDICATION
     Dosage: 10 MG, QID
     Route: 048
  16. ADCIRCA [Concomitant]
     Active Substance: TADALAFIL
     Indication: PULMONARY ARTERIAL HYPERTENSION
     Dosage: 40 MG, TOTAL DAILY DOSE
     Route: 048
     Dates: start: 20130201
  17. ECOTRIN [Concomitant]
     Active Substance: ASPIRIN
     Indication: CARDIAC DISORDER
     Dosage: 325 MG, TOTAL DAILY DOSE
     Route: 048
     Dates: start: 20150424
  18. PRILOSEC [Concomitant]
     Active Substance: OMEPRAZOLE MAGNESIUM
     Indication: GASTROOESOPHAGEAL REFLUX DISEASE
     Dosage: 20 MG, TOTAL DAILY DOSE
     Route: 048
     Dates: start: 2011
  19. INSPRA [Concomitant]
     Active Substance: EPLERENONE
     Indication: HYPOKALAEMIA
     Dosage: 50 MG, UNK
     Route: 048
     Dates: start: 20160113
  20. ZOCOR [Concomitant]
     Active Substance: SIMVASTATIN
     Indication: RAYNAUD^S PHENOMENON
     Dosage: 20 MG, TOTAL DAILY DOSE
     Route: 048
     Dates: start: 20151230
  21. LOMOTIL [Concomitant]
     Active Substance: ATROPINE SULFATE\DIPHENOXYLATE HYDROCHLORIDE
     Indication: DIARRHOEA
     Dosage: 200 MG, QID, 1 TABLET
     Route: 048
  22. GLUCOSE [Concomitant]
     Active Substance: DEXTROSE
     Indication: BLOOD GLUCOSE DECREASED
     Dosage: 59 ML, PRN
     Route: 048
  23. MAG-OX [Concomitant]
     Active Substance: MAGNESIUM OXIDE
     Indication: PRODUCT USED FOR UNKNOWN INDICATION
     Dosage: 400 MG, BID
     Route: 048
  24. MEDROL [Concomitant]
     Active Substance: METHYLPREDNISOLONE
     Indication: SCLERODERMA
     Dosage: 4 MG, TOTAL DAILY DOSE
     Route: 048
     Dates: start: 2011

REACTIONS (10)
  - Ventricular tachycardia [Unknown]
  - Dysphagia [Unknown]
  - Systemic scleroderma [Recovered/Resolved with Sequelae]
  - Malnutrition [Unknown]
  - Pericardial effusion [Not Recovered/Not Resolved]
  - Pleural effusion [Unknown]
  - Asthenia [Unknown]
  - Hyponatraemia [Unknown]
  - Oedema peripheral [Unknown]
  - Treatment noncompliance [Unknown]

NARRATIVE: CASE EVENT DATE: 201712
